FAERS Safety Report 24591649 (Version 2)
Quarter: 2025Q1

REPORT INFORMATION
  Report Type: Spontaneous
  Country: US (occurrence: US)
  Receive Date: 20241108
  Receipt Date: 20250107
  Transmission Date: 20250408
  Serious: No
  Sender: APOTEX
  Company Number: US-APOTEX-2024AP017269

PATIENT
  Sex: Female

DRUGS (1)
  1. BRIMONIDINE TARTRATE [Suspect]
     Active Substance: BRIMONIDINE TARTRATE
     Indication: Product used for unknown indication
     Dosage: 2 GTT DROPS, QD
     Route: 047
     Dates: start: 20241028

REACTIONS (2)
  - Product dose omission issue [Unknown]
  - Product packaging quantity issue [Unknown]

NARRATIVE: CASE EVENT DATE: 20241029
